FAERS Safety Report 4788201-4 (Version None)
Quarter: 2005Q4

REPORT INFORMATION
  Report Type: 
  Country: None (occurrence: None)
  Receive Date: 20051005
  Receipt Date: 20050921
  Transmission Date: 20060501
  Serious: Yes (Other)
  Sender: FDA-Public Use
  Company Number: 200518325GDDC

PATIENT
  Age: 68 Year
  Sex: Female

DRUGS (8)
  1. INSULIN GLARGINE [Suspect]
     Indication: DIABETES MELLITUS
     Route: 058
     Dates: start: 20050912, end: 20050920
  2. OPTIPEN (INSULIN PUMP) [Suspect]
     Indication: DIABETES MELLITUS
  3. OMACOR [Suspect]
     Dosage: DOSE: 1 CAPSULE
     Route: 048
     Dates: start: 20050912, end: 20050917
  4. ENALAPRIL [Concomitant]
     Indication: HYPERTENSION
     Route: 048
     Dates: start: 20050501
  5. METOPROLOL [Concomitant]
     Indication: HYPERTENSION
     Route: 048
     Dates: start: 20050501
  6. FUROSEMIDE [Concomitant]
     Indication: OEDEMA
     Route: 048
     Dates: start: 20050801
  7. WARFARIN SODIUM [Concomitant]
     Route: 048
     Dates: start: 20050501
  8. FLUOXETINE [Concomitant]
     Indication: DEPRESSION
     Route: 048
     Dates: start: 20050601

REACTIONS (1)
  - ERYTHEMA MULTIFORME [None]
